FAERS Safety Report 9655912 (Version 1)
Quarter: 2013Q4

REPORT INFORMATION
  Report Type: Spontaneous
  Country: US (occurrence: US)
  Receive Date: 20131030
  Receipt Date: 20131030
  Transmission Date: 20140711
  Serious: Yes (Other)
  Sender: FDA-Public Use
  Company Number: US-BRISTOL-MYERS SQUIBB COMPANY-19627553

PATIENT
  Age: 9 Decade
  Sex: Female

DRUGS (1)
  1. ELIQUIS [Suspect]
     Dosage: 1DF:2.5 UNITS NOS

REACTIONS (1)
  - Transient ischaemic attack [Unknown]
